FAERS Safety Report 14581582 (Version 2)
Quarter: 2019Q1

REPORT INFORMATION
  Report Type: Report from Study
  Country: None (occurrence: JP)
  Receive Date: 20180228
  Receipt Date: 20190117
  Transmission Date: 20190417
  Serious: Yes (Hospitalization)
  Sender: FDA-Public Use
  Company Number: JP-ABBVIE-18S-087-2269446-00

PATIENT
  Age: 68 Year
  Sex: Female

DRUGS (9)
  1. VIEKIRAX [Suspect]
     Active Substance: OMBITASVIR\PARITAPREVIR\RITONAVIR
     Indication: CHRONIC HEPATITIS C
     Route: 048
     Dates: start: 20140312, end: 20140603
  2. FALKAMIN [Concomitant]
     Indication: HEPATITIS C
     Route: 048
     Dates: start: 20050101
  3. STRONGER NEO-MINOPHAGEN C, -P [Concomitant]
     Indication: HEPATITIS C
     Route: 042
     Dates: start: 20120701, end: 20141125
  4. CLOSTRIDIUM BUTYRICUM COMBINED [Concomitant]
     Indication: CONSTIPATION
     Dosage: PRN
     Route: 048
     Dates: start: 20140425
  5. MAGNESIUM OXIDE. [Concomitant]
     Active Substance: MAGNESIUM OXIDE
     Indication: CONSTIPATION
     Dosage: PRN
     Route: 048
     Dates: start: 20140319
  6. URSODEOXYCHOLIC ACID [Concomitant]
     Active Substance: URSODIOL
     Indication: HEPATITIS C
     Route: 048
     Dates: start: 20020101
  7. SENNA EXTRACT [Concomitant]
     Indication: CONSTIPATION
     Dosage: PRN
     Route: 048
     Dates: start: 20140319
  8. TIZANIDINE HYDROCHLORIDE. [Concomitant]
     Active Substance: TIZANIDINE HYDROCHLORIDE
     Indication: MUSCLE SPASMS
     Route: 048
     Dates: start: 20060101
  9. SHAKUYAKUKANZOTO [Concomitant]
     Active Substance: HERBALS
     Indication: MUSCLE SPASMS
     Route: 048
     Dates: start: 20060101

REACTIONS (2)
  - Hepatocellular carcinoma [Recovered/Resolved]
  - Hepatocellular carcinoma [Recovered/Resolved]

NARRATIVE: CASE EVENT DATE: 20160708
